FAERS Safety Report 7984185-6 (Version None)
Quarter: 2011Q4

REPORT INFORMATION
  Report Type: 
  Country: None (occurrence: None)
  Receive Date: 20111213
  Receipt Date: 20111207
  Transmission Date: 20120403
  Serious: Yes (Other)
  Sender: FDA-Public Use
  Company Number: FR-GDP-11412564

PATIENT
  Sex: Female

DRUGS (1)
  1. METRONIDAZOLE [Suspect]
     Indication: ROSACEA
     Dosage: (CUTANEOUS)
     Route: 003
     Dates: start: 20111005, end: 20111019

REACTIONS (1)
  - ANGIOEDEMA [None]
